FAERS Safety Report 9306415 (Version 3)
Quarter: 2013Q3

REPORT INFORMATION
  Report Type: Spontaneous
  Country: GB (occurrence: GB)
  Receive Date: 20130523
  Receipt Date: 20130905
  Transmission Date: 20140515
  Serious: Yes (Other)
  Sender: FDA-Public Use
  Company Number: GB-WATSON-2013-09522

PATIENT
  Age: 73 Year
  Sex: Male

DRUGS (2)
  1. DILTIAZEM HYDROCHLORIDE (UNKNOWN) [Suspect]
     Indication: CARDIAC DISORDER
     Dosage: 60 MG, DAILY
     Route: 065
     Dates: start: 201304, end: 201305
  2. BISOPROLOL (UNKNOWN) [Suspect]
     Indication: CARDIAC DISORDER
     Dosage: UNK
     Route: 065
     Dates: start: 20130214

REACTIONS (3)
  - Cutaneous lupus erythematosus [Unknown]
  - Photosensitivity reaction [Unknown]
  - Somnolence [Unknown]
